FAERS Safety Report 5811391-9 (Version None)
Quarter: 2008Q3

REPORT INFORMATION
  Report Type: 
  Country: None (occurrence: None)
  Receive Date: 20080716
  Receipt Date: 20080711
  Transmission Date: 20090109
  Serious: Yes (Life-Threatening, Hospitalization)
  Sender: FDA-Public Use
  Company Number: JP-AVENTIS-200811349JP

PATIENT
  Age: 50 Year
  Sex: Male
  Weight: 64.75 kg

DRUGS (5)
  1. TAXOTERE [Suspect]
     Route: 041
     Dates: start: 20080421, end: 20080421
  2. TAXOTERE [Suspect]
     Route: 041
     Dates: start: 20080421, end: 20080421
  3. DECADRON [Concomitant]
     Dosage: DOSE: 0.5 A
     Route: 041
     Dates: start: 20080421, end: 20080421
  4. KYTRIL                             /01178101/ [Concomitant]
     Dosage: DOSE: 1 A
     Route: 041
     Dates: start: 20080421, end: 20080421
  5. RADIATION THERAPY [Concomitant]
     Dates: start: 20080219, end: 20080310

REACTIONS (2)
  - ANAPHYLACTIC SHOCK [None]
  - VENTRICULAR FIBRILLATION [None]
